FAERS Safety Report 11569901 (Version 2)
Quarter: 2015Q4

REPORT INFORMATION
  Report Type: Report from Study
  Country: DE (occurrence: DE)
  Receive Date: 20150929
  Receipt Date: 20151006
  Transmission Date: 20160304
  Serious: Yes (Hospitalization)
  Sender: FDA-Public Use
  Company Number: DE-TEVA-595041GER

PATIENT
  Age: 78 Year
  Sex: Female
  Weight: 50 kg

DRUGS (22)
  1. VINCRISTINE [Suspect]
     Active Substance: VINCRISTINE
     Indication: NON-HODGKIN^S LYMPHOMA
     Dosage: LAST DOSE PRIOR TO SAE: 17-AUG-2015
     Route: 042
     Dates: start: 20150817
  2. CALCIUM [Concomitant]
     Active Substance: CALCIUM
     Indication: OSTEOPOROSIS
     Dosage: 400 MILLIGRAM DAILY;
     Route: 048
     Dates: start: 20150711
  3. COLECALCIFEROL [Concomitant]
     Active Substance: CHOLECALCIFEROL
     Indication: OSTEOPOROSIS
     Dosage: 800 MILLIGRAM DAILY;
     Route: 048
     Dates: start: 20150711
  4. FENTANYL TRANSDERMAL SYSTEM [Concomitant]
     Active Substance: FENTANYL
     Indication: OSTEOPOROSIS
     Dosage: .3333 DOSAGE FORMS DAILY; 1 DF = 25 MCG/H
     Route: 062
     Dates: start: 20150715
  5. LONQUEX [Suspect]
     Active Substance: LIPEGFILGRASTIM
  6. DOXEPIN [Concomitant]
     Active Substance: DOXEPIN
     Indication: SLEEP DISORDER
     Dosage: 75 MILLIGRAM DAILY;
     Route: 048
     Dates: start: 20150711
  7. COLECALCIFEROL [Concomitant]
     Active Substance: CHOLECALCIFEROL
     Dosage: 2000 IU (INTERNATIONAL UNIT) DAILY;
     Route: 048
     Dates: start: 20150711
  8. PREDNISOLONE. [Concomitant]
     Active Substance: PREDNISOLONE
     Indication: NON-HODGKIN^S LYMPHOMA
     Dates: start: 2015
  9. BUDESONIDE/FORMOTEROLHEMIFUMARAT [Concomitant]
     Indication: ASTHMA
     Dosage: 164.5 MICROGRAM DAILY;
     Route: 055
  10. COTRIMOXAZOLE [Concomitant]
     Active Substance: SULFAMETHOXAZOLE\TRIMETHOPRIM
     Indication: ANTIFUNGAL PROPHYLAXIS
     Route: 048
     Dates: start: 20150810
  11. LAXOBERAL [Concomitant]
     Active Substance: SODIUM PICOSULFATE
     Dosage: 25 GTT DAILY;
     Route: 048
     Dates: start: 20150820, end: 20150913
  12. RITUXIMAB [Concomitant]
     Active Substance: RITUXIMAB
     Indication: NON-HODGKIN^S LYMPHOMA
     Dates: start: 2015
  13. DOXORUBICIN [Concomitant]
     Active Substance: DOXORUBICIN
     Indication: NON-HODGKIN^S LYMPHOMA
     Dates: start: 2015
  14. LAXOBERAL [Concomitant]
     Active Substance: SODIUM PICOSULFATE
     Dosage: 5 GTT DAILY;
     Route: 048
     Dates: start: 20150711, end: 20150809
  15. CYCLOPHOSPHAMIDE. [Concomitant]
     Active Substance: CYCLOPHOSPHAMIDE
     Indication: NON-HODGKIN^S LYMPHOMA
     Dates: start: 2015
  16. LAXOBERAL [Concomitant]
     Active Substance: SODIUM PICOSULFATE
     Indication: CONSTIPATION
     Dosage: 25 GTT DAILY;
     Route: 048
     Dates: start: 20150914
  17. ALENDRONIC ACID [Concomitant]
     Active Substance: ALENDRONIC ACID
     Indication: OSTEOPOROSIS
     Route: 048
     Dates: start: 20150711
  18. NEULASTA [Suspect]
     Active Substance: PEGFILGRASTIM
     Indication: PROPHYLAXIS
     Dosage: LAST DOSE PRIOR TO SAE: 09-SEP-2015
     Route: 058
     Dates: start: 20150819
  19. L-THYROXIN [Concomitant]
     Active Substance: LEVOTHYROXINE SODIUM
     Indication: HYPOTHYROIDISM
     Dosage: 50 MICROGRAM DAILY;
     Route: 048
     Dates: start: 201507
  20. LAXOBERAL [Concomitant]
     Active Substance: SODIUM PICOSULFATE
     Dosage: 25 GTT DAILY;
     Route: 048
     Dates: start: 20150810, end: 20150819
  21. NOVALGIN [Concomitant]
     Active Substance: METAMIZOLE SODIUM
     Indication: ABDOMINAL PAIN
     Dosage: 60 GTT DAILY;
     Route: 048
     Dates: start: 20150914
  22. SAB SIMPLEX [Concomitant]
     Indication: CONSTIPATION
     Dosage: 15 ML DAILY;
     Route: 048
     Dates: start: 20150914

REACTIONS (1)
  - Ileus [Recovered/Resolved]

NARRATIVE: CASE EVENT DATE: 20150915
